FAERS Safety Report 5616690-1 (Version None)
Quarter: 2008Q1

REPORT INFORMATION
  Report Type: 
  Country: None (occurrence: None)
  Receive Date: 20080207
  Receipt Date: 20080130
  Transmission Date: 20080703
  Serious: Yes (Other)
  Sender: FDA-Public Use
  Company Number: PHRM2007FR02364

PATIENT
  Age: 81 Year
  Sex: Female
  Weight: 47 kg

DRUGS (6)
  1. EXJADE [Suspect]
     Indication: HAEMOCHROMATOSIS
     Dosage: UNK, UNK
     Route: 048
     Dates: start: 20070703, end: 20070817
  2. DANATROL [Concomitant]
     Route: 048
     Dates: start: 20041201
  3. NITRODERM [Concomitant]
     Dates: start: 20070703
  4. MEDIATENSYL [Concomitant]
     Route: 048
     Dates: start: 20061001
  5. LEXOMIL [Concomitant]
     Route: 048
     Dates: start: 20040101
  6. LAROXYL [Concomitant]
     Route: 048
     Dates: start: 20040101

REACTIONS (8)
  - ANAEMIA [None]
  - BONE MARROW TOXICITY [None]
  - CONDITION AGGRAVATED [None]
  - HAEMOGLOBIN DECREASED [None]
  - NEUTROPHIL COUNT DECREASED [None]
  - PANCYTOPENIA [None]
  - PLATELET COUNT DECREASED [None]
  - WHITE BLOOD CELL COUNT DECREASED [None]
